FAERS Safety Report 11514830 (Version 6)
Quarter: 2016Q1

REPORT INFORMATION
  Report Type: Report from Study
  Country: US (occurrence: US)
  Receive Date: 20150916
  Receipt Date: 20160115
  Transmission Date: 20160525
  Serious: Yes (Other)
  Sender: FDA-Public Use
  Company Number: US-AMGEN-USASP2015094464

PATIENT
  Age: 73 Year
  Sex: Female
  Weight: 51.7 kg

DRUGS (13)
  1. CALCIUM [Concomitant]
     Active Substance: CALCIUM
     Dosage: UNK
  2. FOLIC ACID. [Concomitant]
     Active Substance: FOLIC ACID
     Dosage: 1 MG, QD
  3. METHOTREXATE SODIUM. [Concomitant]
     Active Substance: METHOTREXATE SODIUM
     Dosage: 2.5MG TABLET, 4 TABLET BY MOUTH EVERY WEEK
     Route: 048
  4. VITAMIN D                          /00107901/ [Concomitant]
     Active Substance: ERGOCALCIFEROL
     Dosage: 50000 UNK, QMO
  5. ALEVE [Concomitant]
     Active Substance: NAPROXEN SODIUM
     Dosage: 1CAPSULE 220 MG, 2 TIMES A DAY
  6. ENBREL [Suspect]
     Active Substance: ETANERCEPT
     Indication: ANKYLOSING SPONDYLITIS
  7. FOSAMAX [Suspect]
     Active Substance: ALENDRONATE SODIUM
     Indication: PRODUCT USED FOR UNKNOWN INDICATION
     Dosage: UNK
     Route: 065
  8. ACTONEL [Suspect]
     Active Substance: RISEDRONATE SODIUM
     Indication: PRODUCT USED FOR UNKNOWN INDICATION
     Dosage: UNK
     Route: 065
  9. CALCIUM CARBONATE. [Concomitant]
     Active Substance: CALCIUM CARBONATE
     Dosage: 1 TABLET 650 MG, DAILY
  10. GLUCOSAMINE + CHONDROITIN          /01430901/ [Concomitant]
     Dosage: 750MG - 60MG - 150MG - 1MG 1 TABLET DAILY
  11. VITAMIN D3 [Concomitant]
     Active Substance: CHOLECALCIFEROL
     Dosage: 50000 UNIT, 1 CAPSULE BY MOUTH WEEKLY X 12 WEEKS THEN 1 EVERY MONTH THEREAFTER
     Route: 048
  12. ENBREL [Suspect]
     Active Substance: ETANERCEPT
     Indication: RHEUMATOID ARTHRITIS
     Dosage: 50 MG, QWK
     Route: 058
     Dates: start: 201503
  13. ENBREL [Suspect]
     Active Substance: ETANERCEPT
     Indication: PSORIATIC ARTHROPATHY
     Dosage: UNK
     Route: 058

REACTIONS (43)
  - Pain in extremity [Unknown]
  - Muscle spasms [Unknown]
  - Joint contracture [Unknown]
  - Bone pain [Unknown]
  - Contusion [Recovered/Resolved]
  - Skin discolouration [Unknown]
  - Influenza [Unknown]
  - Injection site haemorrhage [Unknown]
  - Joint range of motion decreased [Unknown]
  - Injection site bruising [Unknown]
  - Musculoskeletal pain [Unknown]
  - Nausea [Unknown]
  - Injection site swelling [Recovering/Resolving]
  - Raynaud^s phenomenon [Unknown]
  - Neck pain [Unknown]
  - Device issue [Unknown]
  - Malaise [Unknown]
  - Cough [Unknown]
  - Injection site discolouration [Recovering/Resolving]
  - Arthralgia [Unknown]
  - Tenderness [Unknown]
  - Musculoskeletal stiffness [Unknown]
  - Erythema [Unknown]
  - Anxiety [Unknown]
  - Drug dose omission [Unknown]
  - Oesophageal discomfort [Unknown]
  - Dry eye [Unknown]
  - Fatigue [Unknown]
  - Alopecia [Unknown]
  - Rash [Unknown]
  - Herpes zoster [Not Recovered/Not Resolved]
  - Insomnia [Unknown]
  - Finger deformity [Unknown]
  - Sjogren^s syndrome [Unknown]
  - Nodule [Unknown]
  - Hand deformity [Unknown]
  - Injection site reaction [Unknown]
  - Tremor [Unknown]
  - Dry mouth [Unknown]
  - Photosensitivity reaction [Unknown]
  - Headache [Recovered/Resolved]
  - Injection site pain [Unknown]
  - Osteoporosis [Unknown]

NARRATIVE: CASE EVENT DATE: 2015
